FAERS Safety Report 25537205 (Version 1)
Quarter: 2025Q3

REPORT INFORMATION
  Report Type: Spontaneous
  Country: GB (occurrence: GB)
  Receive Date: 20250710
  Receipt Date: 20250710
  Transmission Date: 20251020
  Serious: Yes (Life-Threatening, Hospitalization, Other)
  Sender: SANDOZ
  Company Number: None

PATIENT
  Age: 49 Year
  Sex: Female

DRUGS (2)
  1. TYRUKO [Suspect]
     Active Substance: NATALIZUMAB-SZTN
     Indication: Product used for unknown indication
     Route: 065
     Dates: start: 20241105, end: 20250307
  2. TYSABRI [Suspect]
     Active Substance: NATALIZUMAB
     Indication: Multiple sclerosis
     Route: 065
     Dates: start: 20241105, end: 20250307

REACTIONS (2)
  - Pneumatosis [Recovering/Resolving]
  - Eosinophilic pneumonia [Unknown]

NARRATIVE: CASE EVENT DATE: 20250101
